FAERS Safety Report 14280969 (Version 1)
Quarter: 2017Q4

REPORT INFORMATION
  Report Type: Spontaneous
  Country: US (occurrence: US)
  Receive Date: 20171213
  Receipt Date: 20171213
  Transmission Date: 20180321
  Serious: No
  Sender: FDA-Public Use
  Company Number: US-GLAXOSMITHKLINE-US2017191185

PATIENT
  Age: 61 Year
  Sex: Female

DRUGS (13)
  1. ATORVASTATIN [Concomitant]
     Active Substance: ATORVASTATIN
  2. CYCLOBENZAPRINE. [Concomitant]
     Active Substance: CYCLOBENZAPRINE
  3. METFORMIN [Concomitant]
     Active Substance: METFORMIN HYDROCHLORIDE
  4. ZOLPIDEM [Concomitant]
     Active Substance: ZOLPIDEM\ZOLPIDEM TARTRATE
  5. TANZEUM [Suspect]
     Active Substance: ALBIGLUTIDE
     Indication: TYPE 2 DIABETES MELLITUS
     Dosage: 50 MG, WE
     Route: 058
     Dates: start: 201708
  6. CLONIDINE. [Concomitant]
     Active Substance: CLONIDINE
  7. LISINOPRIL. [Concomitant]
     Active Substance: LISINOPRIL
  8. NOVOLOG [Concomitant]
     Active Substance: INSULIN ASPART
  9. TOUJEO [Concomitant]
     Active Substance: INSULIN GLARGINE
  10. CORGARD [Concomitant]
     Active Substance: NADOLOL
  11. FUROSEMIDE. [Concomitant]
     Active Substance: FUROSEMIDE
  12. MELOXICAM. [Concomitant]
     Active Substance: MELOXICAM
  13. ONGLYZA [Concomitant]
     Active Substance: SAXAGLIPTIN HYDROCHLORIDE

REACTIONS (3)
  - Oropharyngeal pain [Not Recovered/Not Resolved]
  - Laryngitis [Not Recovered/Not Resolved]
  - Paranasal sinus hypersecretion [Not Recovered/Not Resolved]

NARRATIVE: CASE EVENT DATE: 20171208
